FAERS Safety Report 7912600-2 (Version None)
Quarter: 2011Q4

REPORT INFORMATION
  Report Type: 
  Country: None (occurrence: None)
  Receive Date: 20111114
  Receipt Date: 20111015
  Transmission Date: 20120403
  Serious: No
  Sender: FDA-Public Use
  Company Number: US-BAYER-2011-100928

PATIENT

DRUGS (4)
  1. THYROID TAB [Concomitant]
  2. FLEXERIL [Concomitant]
  3. NEURONTIN [Concomitant]
  4. ALEVE (CAPLET) [Suspect]
     Indication: BACK PAIN
     Route: 048

REACTIONS (2)
  - GASTRIC DISORDER [None]
  - NO ADVERSE EVENT [None]
